FAERS Safety Report 17237127 (Version 4)
Quarter: 2021Q1

REPORT INFORMATION
  Report Type: Spontaneous
  Country: US (occurrence: US)
  Receive Date: 20200106
  Receipt Date: 20210119
  Transmission Date: 20210419
  Serious: No
  Sender: FDA-Public Use
  Company Number: US-PFIZER INC-2018524886

PATIENT
  Age: 63 Year
  Sex: Male

DRUGS (9)
  1. LYRICA [Suspect]
     Active Substance: PREGABALIN
     Indication: SEIZURE
     Dosage: 300 MG, 2X/DAY [1 TAKE 1 CAP BY MOUTH 2 TIMES DAILY]
     Route: 048
  2. LYRICA [Suspect]
     Active Substance: PREGABALIN
     Indication: NEURITIS
  3. OXYCODONE [Concomitant]
     Active Substance: OXYCODONE
     Dosage: 10 MG, 3X/DAY
  4. LYRICA [Suspect]
     Active Substance: PREGABALIN
     Indication: INTERVERTEBRAL DISC DISORDER
  5. LYRICA [Suspect]
     Active Substance: PREGABALIN
     Indication: NEURALGIA
  6. LYRICA [Suspect]
     Active Substance: PREGABALIN
     Indication: INTERVERTEBRAL DISC DEGENERATION
  7. LYRICA [Suspect]
     Active Substance: PREGABALIN
     Indication: SPINAL OSTEOARTHRITIS
  8. LYRICA [Suspect]
     Active Substance: PREGABALIN
     Indication: PAIN
  9. MORPHINE [Concomitant]
     Active Substance: MORPHINE
     Dosage: UNK

REACTIONS (1)
  - Constipation [Unknown]
